FAERS Safety Report 18587333 (Version 2)
Quarter: 2020Q4

REPORT INFORMATION
  Report Type: Spontaneous
  Country: NO (occurrence: NO)
  Receive Date: 20201207
  Receipt Date: 20201216
  Transmission Date: 20210114
  Serious: Yes (Life-Threatening, Other)
  Sender: FDA-Public Use
  Company Number: NO-SEATTLE GENETICS-2020SGN05367

PATIENT
  Sex: Female

DRUGS (1)
  1. ADCETRIS [Suspect]
     Active Substance: BRENTUXIMAB VEDOTIN
     Indication: ANAPLASTIC LARGE-CELL LYMPHOMA
     Dosage: UNK
     Route: 065
     Dates: start: 2013

REACTIONS (3)
  - Scleroderma [Unknown]
  - Chronic graft versus host disease [Unknown]
  - Dry eye [Unknown]
